FAERS Safety Report 19767306 (Version 4)
Quarter: 2021Q4

REPORT INFORMATION
  Report Type: Spontaneous
  Country: AU (occurrence: AU)
  Receive Date: 20210830
  Receipt Date: 20211022
  Transmission Date: 20220303
  Serious: Yes (Death, Hospitalization, Other)
  Sender: FDA-Public Use
  Company Number: AU-ALXN-A202109616

PATIENT
  Sex: Female
  Weight: 98 kg

DRUGS (2)
  1. SOLIRIS [Suspect]
     Active Substance: ECULIZUMAB
     Indication: Atypical haemolytic uraemic syndrome
     Dosage: UNK, 3 VIALS
     Route: 065
  2. SOLIRIS [Suspect]
     Active Substance: ECULIZUMAB
     Dosage: UNK, SINGLE
     Route: 065

REACTIONS (3)
  - Thrombotic microangiopathy [Fatal]
  - Multiple organ dysfunction syndrome [Fatal]
  - Metastatic malignant melanoma [Fatal]

NARRATIVE: CASE EVENT DATE: 20210730
